FAERS Safety Report 24539127 (Version 1)
Quarter: 2024Q4

REPORT INFORMATION
  Report Type: Spontaneous
  Country: US (occurrence: US)
  Receive Date: 20241023
  Receipt Date: 20241023
  Transmission Date: 20250115
  Serious: Yes (Death, Hospitalization, Other)
  Sender: AMGEN
  Company Number: US-AMGEN-USASP2024205293

PATIENT
  Age: 67 Year
  Sex: Male

DRUGS (14)
  1. CARFILZOMIB [Suspect]
     Active Substance: CARFILZOMIB
     Indication: Plasma cell myeloma
     Dosage: UNK
     Route: 065
  2. CILTACABTAGENE AUTOLEUCEL [Suspect]
     Active Substance: CILTACABTAGENE AUTOLEUCEL
     Indication: Product used for unknown indication
     Dosage: UNK
     Route: 065
  3. CARBIDOPA AND LEVODOPA [Suspect]
     Active Substance: CARBIDOPA\LEVODOPA
     Indication: Product used for unknown indication
     Dosage: UNK UNK, TID (25 MG 100 MG WAS INITIATED AT ONE TABLET THREE TIMES A DAY
     Route: 065
  4. ROPINIROLE [Suspect]
     Active Substance: ROPINIROLE
     Indication: Product used for unknown indication
     Dosage: UNK UNK, TID (I MG TO 2 MG THREE TIMES DAILY)
     Route: 065
  5. AMANTADINE [Suspect]
     Active Substance: AMANTADINE
     Indication: Product used for unknown indication
     Dosage: 100 MILLIGRAM, BID (100 MG TWICE DAILY)
     Route: 065
  6. POMALIDOMIDE [Suspect]
     Active Substance: POMALIDOMIDE
     Indication: Plasma cell myeloma
     Dosage: UNK
     Route: 065
  7. DEXAMETHASONE [Suspect]
     Active Substance: DEXAMETHASONE
     Indication: Plasma cell myeloma
     Dosage: 10 MILLIGRAM, Q8H (10 MG OF DEXAMETHASONE EVERY 8 H)
     Route: 065
  8. DARATUMUMAB [Suspect]
     Active Substance: DARATUMUMAB
     Indication: Plasma cell myeloma
     Dosage: UNK
     Route: 065
  9. BORTEZOMIB [Concomitant]
     Active Substance: BORTEZOMIB
     Dosage: UNK
     Route: 065
  10. SELINEXOR [Concomitant]
     Active Substance: SELINEXOR
     Dosage: UNK
     Route: 065
  11. FLUDARABINE [Concomitant]
     Active Substance: FLUDARABINE PHOSPHATE
     Dosage: UNK
     Route: 065
  12. CYCLOPHOSPHAMIDE [Concomitant]
     Active Substance: CYCLOPHOSPHAMIDE
     Dosage: 2 GRAM PER SQUARE METRE
     Route: 065
  13. TOCILIZUMAB [Concomitant]
     Active Substance: TOCILIZUMAB
     Dosage: UNK
     Route: 065
  14. IMMUNOGLOBULIN G HUMAN;PROTEIN [Concomitant]
     Dosage: 2 GRAM PER KILOGRAM
     Route: 040

REACTIONS (15)
  - Death [Fatal]
  - Parkinsonism [Unknown]
  - Lymphopenia [Unknown]
  - Plasmacytoma [Unknown]
  - Immune effector cell-associated neurotoxicity syndrome [Recovered/Resolved]
  - Cytokine release syndrome [Recovered/Resolved]
  - Haemoptysis [Unknown]
  - Sepsis [Unknown]
  - Pulmonary mucormycosis [Unknown]
  - Pneumonia staphylococcal [Unknown]
  - Pneumonia respiratory syncytial viral [Unknown]
  - Hypoxic-ischaemic encephalopathy [Recovering/Resolving]
  - Respiratory distress [Unknown]
  - Pancytopenia [Unknown]
  - Plasma cell myeloma [Unknown]
